FAERS Safety Report 7040908-4 (Version None)
Quarter: 2010Q3

REPORT INFORMATION
  Report Type: 
  Country: None (occurrence: None)
  Receive Date: 20100929
  Receipt Date: 20100827
  Transmission Date: 20110219
  Serious: No
  Sender: FDA-Public Use
  Company Number: US-WYE-H17265510

PATIENT
  Sex: Female

DRUGS (13)
  1. PRISTIQ [Suspect]
     Indication: DEPRESSION
     Dosage: 50 MG 1X PER 1 DAY
     Dates: start: 20090901
  2. CALCIUM (CALCIUM) [Concomitant]
  3. ACETAMINOPHEN [Concomitant]
  4. AMITIZA [Concomitant]
  5. VITAMIN D [Concomitant]
  6. ASPIRIN [Concomitant]
  7. FUROSEMIDE [Concomitant]
  8. DIGOXIN [Concomitant]
  9. SIMVASTATIN [Concomitant]
  10. METHIMAZOLE [Concomitant]
  11. POTASSIUM (POTASSIUM) [Concomitant]
  12. ALBUTEROL [Concomitant]
  13. BUDESONIDE [Concomitant]

REACTIONS (1)
  - MEDICATION RESIDUE [None]
